FAERS Safety Report 19737673 (Version 1)
Quarter: 2021Q3

REPORT INFORMATION
  Report Type: Spontaneous
  Country: PT (occurrence: PT)
  Receive Date: 20210823
  Receipt Date: 20210823
  Transmission Date: 20211014
  Serious: Yes (Death)
  Sender: FDA-Public Use
  Company Number: PT-MYLANLABS-2021M1053311

PATIENT
  Age: 43 Year
  Sex: Female

DRUGS (8)
  1. LAMOTRIGINE. [Concomitant]
     Active Substance: LAMOTRIGINE
     Dosage: 50 MG, DAILY
  2. GOSERELINE [Concomitant]
     Active Substance: GOSERELIN
     Indication: BREAST CANCER
     Dosage: 3.6 MG, MONTHLY (28/28 DAYS)
     Dates: start: 20191220
  3. TRITICUM [Concomitant]
     Active Substance: TRAZODONE HYDROCHLORIDE
     Dosage: 100 MG, 2X/DAY
  4. SERTRALINE [Concomitant]
     Active Substance: SERTRALINE HYDROCHLORIDE
     Dosage: 50 MG, DAILY
  5. DOL?U?RON FORTE [Concomitant]
     Dosage: UNK
  6. DENOSUMAB [Concomitant]
     Active Substance: DENOSUMAB
     Indication: BREAST CANCER
     Dosage: 120 MG, MONTHLY (28/28 DAYS)
     Dates: start: 20191220
  7. EXEMESTANE. [Suspect]
     Active Substance: EXEMESTANE
     Indication: BREAST CANCER
     Dosage: UNK
     Dates: start: 202006
  8. LEXOTAN [Concomitant]
     Active Substance: BROMAZEPAM
     Dosage: 3 MG, DAILY

REACTIONS (1)
  - Neoplasm progression [Fatal]

NARRATIVE: CASE EVENT DATE: 20201217
